FAERS Safety Report 12966045 (Version 2)
Quarter: 2016Q4

REPORT INFORMATION
  Report Type: Spontaneous
  Country: GB (occurrence: GB)
  Receive Date: 20161122
  Receipt Date: 20161123
  Transmission Date: 20170207
  Serious: Yes (Hospitalization)
  Sender: FDA-Public Use
  Company Number: GB-TEVA-713019ACC

PATIENT
  Age: 54 Year
  Sex: Female

DRUGS (14)
  1. FUROSEMIDE. [Concomitant]
     Active Substance: FUROSEMIDE
  2. OMEPRAZOLE. [Concomitant]
     Active Substance: OMEPRAZOLE
  3. DIAZEPAM. [Suspect]
     Active Substance: DIAZEPAM
     Dosage: 20 MILLIGRAM DAILY; 5MG MORNING AND LUNCH AND 10MG AT NIGHT.
     Route: 048
  4. PREGABALIN. [Concomitant]
     Active Substance: PREGABALIN
     Dosage: NEXT 2 DOSES WITHHELD.
  5. NITRAZEPAM [Suspect]
     Active Substance: NITRAZEPAM
     Dosage: 10 MILLIGRAM DAILY; AT NIGHT.
     Route: 048
  6. BISOPROLOL [Concomitant]
     Active Substance: BISOPROLOL
  7. THIAMINE. [Concomitant]
     Active Substance: THIAMINE
  8. FOLIC ACID. [Concomitant]
     Active Substance: FOLIC ACID
  9. GTN [Concomitant]
     Active Substance: NITROGLYCERIN
  10. AMITRIPTYLINE [Suspect]
     Active Substance: AMITRIPTYLINE
     Dosage: 200 MILLIGRAM DAILY; MORNING AND NIGHT.
     Route: 048
  11. MEZOLAR MATRIX [Suspect]
     Active Substance: FENTANYL
     Indication: PAIN
     Dosage: 2400 MICROGRAM DAILY;
     Route: 062
  12. SIMVASTATIN. [Concomitant]
     Active Substance: SIMVASTATIN
  13. VENLAFAXINE [Concomitant]
     Active Substance: VENLAFAXINE HYDROCHLORIDE
  14. ASPIRIN. [Concomitant]
     Active Substance: ASPIRIN

REACTIONS (2)
  - Chronic obstructive pulmonary disease [Recovering/Resolving]
  - Loss of consciousness [Recovering/Resolving]
